FAERS Safety Report 8033167-7 (Version None)
Quarter: 2012Q1

REPORT INFORMATION
  Report Type: 
  Country: None (occurrence: None)
  Receive Date: 20120110
  Receipt Date: 20120110
  Transmission Date: 20120608
  Serious: Yes (Other)
  Sender: FDA-Public Use
  Company Number: None

PATIENT
  Age: 51 Year
  Sex: Male
  Weight: 74.842 kg

DRUGS (1)
  1. SERTRALINE HYDROCHLORIDE [Suspect]
     Indication: DEPRESSION
     Dosage: 20MG/DAY
     Route: 048
     Dates: start: 20100801, end: 20110801

REACTIONS (5)
  - WITHDRAWAL SYNDROME [None]
  - ABDOMINAL PAIN UPPER [None]
  - FOOD INTOLERANCE [None]
  - AFFECTIVE DISORDER [None]
  - DECREASED ACTIVITY [None]
